FAERS Safety Report 16038569 (Version 2)
Quarter: 2019Q2

REPORT INFORMATION
  Report Type: Spontaneous
  Country: CO (occurrence: CO)
  Receive Date: 20190305
  Receipt Date: 20190410
  Transmission Date: 20190711
  Serious: Yes (Death, Hospitalization, Other)
  Sender: FDA-Public Use
  Company Number: CO-BAXTER-2019BAX004097

PATIENT
  Age: 75 Year
  Sex: Female
  Weight: 61 kg

DRUGS (1)
  1. DIANEAL PD-2 WITH DEXTROSE [Suspect]
     Active Substance: CALCIUM CHLORIDE\DEXTROSE\MAGNESIUM CHLORIDE\SODIUM CHLORIDE\SODIUM LACTATE
     Indication: CHRONIC KIDNEY DISEASE
     Dosage: 3 BAGS PER DAY
     Route: 033
     Dates: start: 201811, end: 20190304

REACTIONS (5)
  - Acute myocardial infarction [Recovered/Resolved]
  - Oncologic complication [Not Recovered/Not Resolved]
  - Haemorrhage [Unknown]
  - Hypovolaemic shock [Fatal]
  - Post procedural infection [Recovering/Resolving]

NARRATIVE: CASE EVENT DATE: 20181226
